FAERS Safety Report 20866780 (Version 1)
Quarter: 2022Q2

REPORT INFORMATION
  Report Type: Report from Study
  Country: US (occurrence: US)
  Receive Date: 20220524
  Receipt Date: 20220524
  Transmission Date: 20220721
  Serious: Yes (Other)
  Sender: FDA-Public Use
  Company Number: US-BAYER-2022A066736

PATIENT
  Age: 58 Year
  Sex: Female

DRUGS (1)
  1. ADEMPAS [Interacting]
     Active Substance: RIOCIGUAT
     Indication: Pulmonary arterial hypertension
     Dosage: 0.5 MG, TID
     Route: 048
     Dates: start: 20220414, end: 20220513

REACTIONS (3)
  - Haematemesis [None]
  - Nausea [None]
  - Vomiting [None]
